FAERS Safety Report 8893552 (Version 1)
Quarter: 2012Q4

REPORT INFORMATION
  Report Type: 
  Country: US (occurrence: US)
  Receive Date: 20121108
  Receipt Date: 20121108
  Transmission Date: 20130627
  Serious: No
  Sender: FDA-Public Use
  Company Number: US-PFIZER INC-2012278453

PATIENT

DRUGS (1)
  1. LYRICA [Suspect]
     Indication: DIABETIC PERIPHERAL NEUROPATHIC PAIN
     Dosage: UNK

REACTIONS (2)
  - Memory impairment [Unknown]
  - Balance disorder [Unknown]
